FAERS Safety Report 6075719-X (Version None)
Quarter: 2009Q1

REPORT INFORMATION
  Report Type: 
  Country: None (occurrence: None)
  Receive Date: 20090209
  Receipt Date: 20090126
  Transmission Date: 20090719
  Serious: Yes (Hospitalization)
  Sender: FDA-Public Use
  Company Number: 280001M09ESP

PATIENT
  Age: 41 Year
  Sex: Female

DRUGS (1)
  1. FERTINORM P (MENOTROPHIN) [Suspect]
     Indication: INFERTILITY FEMALE
     Dosage: 75 IU, INTRAMUSCULAR
     Route: 030
     Dates: start: 20000301, end: 20000501

REACTIONS (3)
  - METASTASES TO LYMPH NODES [None]
  - PANCREATIC CARCINOMA [None]
  - SPLEEN CONGESTION [None]
